FAERS Safety Report 7170572-5 (Version None)
Quarter: 2010Q4

REPORT INFORMATION
  Report Type: 
  Country: None (occurrence: None)
  Receive Date: 20101214
  Receipt Date: 20101214
  Transmission Date: 20110411
  Serious: Yes (Other)
  Sender: FDA-Public Use
  Company Number: None

PATIENT
  Age: 39 Year
  Sex: Female
  Weight: 54.4316 kg

DRUGS (3)
  1. NEXIUM [Suspect]
     Indication: GASTROOESOPHAGEAL REFLUX DISEASE
     Dosage: 40 MG 1 X DAY PO   DATE IS APPROX
     Route: 048
     Dates: start: 20100915, end: 20100930
  2. NEXIUM [Suspect]
     Indication: DISEASE RECURRENCE
     Dates: start: 20101115, end: 20101121
  3. NEXIUM [Suspect]
     Indication: LUNG INFECTION
     Dates: start: 20101115, end: 20101121

REACTIONS (8)
  - ABDOMINAL PAIN UPPER [None]
  - CHEST PAIN [None]
  - DIARRHOEA [None]
  - DISEASE RECURRENCE [None]
  - DRUG DISPENSING ERROR [None]
  - GASTROOESOPHAGEAL REFLUX DISEASE [None]
  - PRODUCT QUALITY ISSUE [None]
  - PRODUCT TASTE ABNORMAL [None]
